FAERS Safety Report 4990839-6 (Version None)
Quarter: 2006Q2

REPORT INFORMATION
  Report Type: 
  Country: None (occurrence: None)
  Receive Date: 20060428
  Receipt Date: 20060421
  Transmission Date: 20061013
  Serious: Yes (Hospitalization, Disabling)
  Sender: FDA-Public Use
  Company Number: GXKR2006NZ02283

PATIENT
  Age: 7 Month
  Sex: Female

DRUGS (3)
  1. ISONIAZID [Suspect]
     Indication: TUBERCULOSIS
     Dates: start: 20021001
  2. RIFAMPICIN [Suspect]
     Indication: TUBERCULOSIS
     Dates: start: 20021001
  3. PYRAZINAMIDE [Suspect]
     Indication: TUBERCULOSIS
     Dates: start: 20021001

REACTIONS (4)
  - CONDITION AGGRAVATED [None]
  - PULMONARY FUNCTION TEST DECREASED [None]
  - RESPIRATORY DISTRESS [None]
  - RESPIRATORY TRACT INFECTION [None]
